FAERS Safety Report 5752433-9 (Version None)
Quarter: 2008Q2

REPORT INFORMATION
  Report Type: 
  Country: None (occurrence: None)
  Receive Date: 20080529
  Receipt Date: 20080519
  Transmission Date: 20081010
  Serious: Yes (Hospitalization)
  Sender: FDA-Public Use
  Company Number: B0521270A

PATIENT
  Age: 55 Year
  Sex: Male

DRUGS (4)
  1. ZOPHREN [Suspect]
     Indication: PREMEDICATION
     Dosage: 8MG CYCLIC
     Route: 042
     Dates: start: 20080320, end: 20080320
  2. FLUOROURACIL [Suspect]
     Indication: DRUG USE FOR UNKNOWN INDICATION
     Route: 042
     Dates: start: 20080320, end: 20080321
  3. ELOXATIN [Suspect]
     Indication: DRUG USE FOR UNKNOWN INDICATION
     Dosage: 160MG CYCLIC
     Route: 042
     Dates: start: 20080320, end: 20080320
  4. SOLU-MEDROL [Suspect]
     Indication: DRUG USE FOR UNKNOWN INDICATION
     Dosage: 120MG CYCLIC
     Route: 042
     Dates: start: 20080320, end: 20080320

REACTIONS (2)
  - CHEST PAIN [None]
  - TROPONIN INCREASED [None]
